FAERS Safety Report 18169058 (Version 7)
Quarter: 2022Q2

REPORT INFORMATION
  Report Type: Spontaneous
  Country: US (occurrence: US)
  Receive Date: 20200819
  Receipt Date: 20220627
  Transmission Date: 20220721
  Serious: No
  Sender: FDA-Public Use
  Company Number: US-PFIZER INC-2020273920

PATIENT
  Age: 67 Year
  Sex: Female
  Weight: 71.21 kg

DRUGS (2)
  1. IBRANCE [Suspect]
     Active Substance: PALBOCICLIB
     Indication: Breast cancer metastatic
     Dosage: 100 MG, CYCLIC (3 WEEKS ON AND 1 WEEK OFF)
     Route: 048
     Dates: start: 201907
  2. IBRANCE [Suspect]
     Active Substance: PALBOCICLIB
     Dosage: 75 MG, CYCLIC (DAILY FOR 14 DAYS FOLLOWED BY 1 WEEK OFF THEN REPEAT)

REACTIONS (8)
  - Weight decreased [Unknown]
  - Cold sweat [Unknown]
  - Hyperhidrosis [Unknown]
  - Chills [Unknown]
  - Sinus disorder [Unknown]
  - Malaise [Unknown]
  - Energy increased [Unknown]
  - Distractibility [Unknown]
